FAERS Safety Report 9458525 (Version 1)
Quarter: 2013Q3

REPORT INFORMATION
  Report Type: Spontaneous
  Country: US (occurrence: None)
  Receive Date: 20130813
  Receipt Date: 20130813
  Transmission Date: 20140515
  Serious: Yes (Disabling, Other)
  Sender: FDA-Public Use
  Company Number: None

PATIENT
  Age: 95 Year
  Sex: Male
  Weight: 68.04 kg

DRUGS (1)
  1. MACUGEN [Suspect]
     Indication: MACULAR DEGENERATION
     Dosage: AS NEEDED INTO THE EYE
     Dates: start: 20100801, end: 20100809

REACTIONS (2)
  - Eye pain [None]
  - Blindness unilateral [None]
